FAERS Safety Report 8316470-2 (Version None)
Quarter: 2012Q2

REPORT INFORMATION
  Report Type: 
  Country: None (occurrence: None)
  Receive Date: 20120427
  Receipt Date: 20120413
  Transmission Date: 20120825
  Serious: Yes (Hospitalization)
  Sender: FDA-Public Use
  Company Number: PHHY2012US031868

PATIENT
  Age: 2 Year
  Sex: Female

DRUGS (3)
  1. CYCLOSPORINE [Suspect]
     Indication: PROPHYLAXIS AGAINST GRAFT VERSUS HOST DISEASE
  2. METHYLPREDNISOLONE [Concomitant]
     Dosage: 2 MG/KG, PER DAY
  3. METHYLPREDNISOLONE [Concomitant]
     Indication: PROPHYLAXIS AGAINST GRAFT VERSUS HOST DISEASE
     Dosage: 1 MG/KG, DAILY

REACTIONS (16)
  - HAEMOLYSIS [None]
  - GRAND MAL CONVULSION [None]
  - POSTERIOR REVERSIBLE ENCEPHALOPATHY SYNDROME [None]
  - URINE OUTPUT DECREASED [None]
  - HAEMOGLOBIN DECREASED [None]
  - RESPIRATORY FAILURE [None]
  - THROMBOTIC MICROANGIOPATHY [None]
  - SEPSIS [None]
  - FLUID OVERLOAD [None]
  - PYREXIA [None]
  - RENAL FAILURE [None]
  - MULTI-ORGAN FAILURE [None]
  - PROTEINURIA [None]
  - BLOOD URINE PRESENT [None]
  - HYPERTENSION [None]
  - PARAINFLUENZAE VIRUS INFECTION [None]
